FAERS Safety Report 21119873 (Version 1)
Quarter: 2022Q3

REPORT INFORMATION
  Report Type: Spontaneous
  Country: US (occurrence: None)
  Receive Date: 20220721
  Receipt Date: 20220721
  Transmission Date: 20221027
  Serious: Yes (Death)
  Sender: FDA-Public Use
  Company Number: None

PATIENT
  Age: 55 Year
  Sex: Female
  Weight: 124.28 kg

DRUGS (1)
  1. GADAVIST [Suspect]
     Active Substance: GADOBUTROL
     Indication: Magnetic resonance imaging
     Dosage: FREQUENCY : ONCE;?
     Route: 042
     Dates: start: 20220614

REACTIONS (5)
  - Nausea [None]
  - Unresponsive to stimuli [None]
  - Cardiac arrest [None]
  - Pulseless electrical activity [None]
  - Infusion related reaction [None]

NARRATIVE: CASE EVENT DATE: 20220614
